FAERS Safety Report 15136835 (Version 1)
Quarter: 2018Q3

REPORT INFORMATION
  Report Type: Spontaneous
  Country: US (occurrence: US)
  Receive Date: 20180712
  Receipt Date: 20180712
  Transmission Date: 20181010
  Serious: No
  Sender: FDA-Public Use
  Company Number: US-MITSUBISHI TANABE PHARMA CORPORATION-MTDA2018-0015577

PATIENT
  Sex: Female

DRUGS (2)
  1. RADICAVA [Suspect]
     Active Substance: EDARAVONE
     Indication: AMYOTROPHIC LATERAL SCLEROSIS
     Route: 042
     Dates: start: 2018
  2. RILUZOLE. [Concomitant]
     Active Substance: RILUZOLE

REACTIONS (3)
  - Infusion site extravasation [Recovered/Resolved]
  - Therapeutic response unexpected [Unknown]
  - Disease progression [Unknown]
